FAERS Safety Report 5288963-6 (Version None)
Quarter: 2007Q1

REPORT INFORMATION
  Report Type: 
  Country: None (occurrence: None)
  Receive Date: 20070119
  Receipt Date: 20061027
  Transmission Date: 20070707
  Serious: Yes (Other)
  Sender: FDA-Public Use
  Company Number: 469426

PATIENT
  Sex: Female

DRUGS (3)
  1. TRETINOIN [Suspect]
     Indication: ACNE
  2. MINOCYCLINE HCL [Suspect]
     Indication: ACNE
  3. LIVER (LIVER EXTRACT) [Suspect]
     Indication: ACNE
     Dosage: ORAL
     Route: 048

REACTIONS (1)
  - BENIGN INTRACRANIAL HYPERTENSION [None]
